FAERS Safety Report 7128946-4 (Version None)
Quarter: 2010Q4

REPORT INFORMATION
  Report Type: 
  Country: None (occurrence: None)
  Receive Date: 20101130
  Receipt Date: 20101123
  Transmission Date: 20110411
  Serious: Yes (Death)
  Sender: FDA-Public Use
  Company Number: B0686300A

PATIENT
  Age: 80 Year
  Sex: Female

DRUGS (2)
  1. ARIXTRA [Suspect]
     Indication: PROPHYLAXIS
     Dosage: 1.5MG PER DAY
     Route: 065
     Dates: start: 20101108, end: 20101113
  2. UNKNOWN DRUG [Concomitant]

REACTIONS (9)
  - CONDITION AGGRAVATED [None]
  - CONTUSION [None]
  - DEATH [None]
  - HAEMORRHAGE [None]
  - HYPERCAPNIA [None]
  - HYPOXIA [None]
  - MELAENA [None]
  - RENAL FAILURE [None]
  - RESPIRATORY FAILURE [None]
